FAERS Safety Report 7475250-0 (Version None)
Quarter: 2011Q2

REPORT INFORMATION
  Report Type: 
  Country: None (occurrence: None)
  Receive Date: 20110512
  Receipt Date: 20110426
  Transmission Date: 20111010
  Serious: Yes (Death, Hospitalization)
  Sender: FDA-Public Use
  Company Number: JP-BAYER-2010-003815

PATIENT
  Age: 69 Year
  Sex: Male

DRUGS (2)
  1. ASPIRIN \^BAYER\^ (JP ASPIRIN) [Concomitant]
     Indication: ACUTE MYOCARDIAL INFARCTION
     Route: 048
  2. NEXAVAR [Suspect]
     Indication: RENAL CELL CARCINOMA
     Dosage: 200 MG, QID
     Route: 048
     Dates: start: 20101020, end: 20101201

REACTIONS (4)
  - GENERAL PHYSICAL HEALTH DETERIORATION [None]
  - DYSPHONIA [None]
  - ASCITES [None]
  - RENAL CELL CARCINOMA [None]
